FAERS Safety Report 25661606 (Version 1)
Quarter: 2025Q3

REPORT INFORMATION
  Report Type: Spontaneous
  Country: US (occurrence: US)
  Receive Date: 20250808
  Receipt Date: 20250808
  Transmission Date: 20251021
  Serious: Yes (Other)
  Sender: PURDUE
  Company Number: US-PURDUE-USA-2025-0319513

PATIENT
  Age: 44 Year
  Sex: Male

DRUGS (16)
  1. LISDEXAMFETAMINE DIMESYLATE [Suspect]
     Active Substance: LISDEXAMFETAMINE DIMESYLATE
     Indication: Product used for unknown indication
     Dosage: 50 MILLIGRAM, DAILY
     Route: 048
  2. SELEGILINE [Suspect]
     Active Substance: SELEGILINE
     Indication: Depression
     Route: 062
  3. SELEGILINE [Suspect]
     Active Substance: SELEGILINE
     Dosage: 70 MILLIGRAM, DAILY (MAXIMUM DOSE)
     Route: 048
  4. BREXPIPRAZOLE [Suspect]
     Active Substance: BREXPIPRAZOLE
     Indication: Product used for unknown indication
     Route: 065
  5. BREXPIPRAZOLE [Suspect]
     Active Substance: BREXPIPRAZOLE
     Route: 065
  6. PHENELZINE [Suspect]
     Active Substance: PHENELZINE
     Indication: Depression
     Dosage: 45 MILLIGRAM, DAILY (STARTING DOSE)
     Route: 048
  7. PHENELZINE [Suspect]
     Active Substance: PHENELZINE
     Dosage: 90 MILLIGRAM, DAILY (MAXIMUM DOSE)
     Route: 048
  8. TRANYLCYPROMINE [Suspect]
     Active Substance: TRANYLCYPROMINE
     Indication: Depression
     Dosage: 20 MILLIGRAM, DAILY (STARTING DOSE)
     Route: 048
  9. TRANYLCYPROMINE [Suspect]
     Active Substance: TRANYLCYPROMINE
     Dosage: 90 MILLIGRAM, DAILY (MAXIMUM DOSE)
     Route: 048
  10. NORTRIPTYLINE [Suspect]
     Active Substance: NORTRIPTYLINE
     Indication: Product used for unknown indication
     Dosage: TITRATED 50 MILLIGRAM, DAILY
     Route: 065
  11. NORTRIPTYLINE [Suspect]
     Active Substance: NORTRIPTYLINE
     Route: 065
  12. KETAMINE [Suspect]
     Active Substance: KETAMINE
     Indication: Product used for unknown indication
     Route: 065
  13. CLONAZEPAM [Suspect]
     Active Substance: CLONAZEPAM
     Indication: Insomnia
     Route: 065
  14. DEPAKOTE [Suspect]
     Active Substance: DIVALPROEX SODIUM
     Indication: Product used for unknown indication
     Route: 065
  15. DOXEPIN [Suspect]
     Active Substance: DOXEPIN
     Indication: Insomnia
     Route: 065
  16. PSILOCYBIN [Suspect]
     Active Substance: PSILOCYBIN
     Indication: Product used for unknown indication
     Route: 065

REACTIONS (8)
  - Suicidal ideation [Unknown]
  - Pain in jaw [Unknown]
  - Chest pain [Unknown]
  - Hyperhidrosis [Unknown]
  - Hypertension [Unknown]
  - Headache [Unknown]
  - Product adhesion issue [Unknown]
  - Drug ineffective [Unknown]
